FAERS Safety Report 6321367-3 (Version None)
Quarter: 2009Q3

REPORT INFORMATION
  Report Type: 
  Country: None (occurrence: None)
  Receive Date: 20090822
  Receipt Date: 20090115
  Transmission Date: 20100115
  Serious: No
  Sender: FDA-Public Use
  Company Number: US-ABBOTT-09P-163-0498260-00

PATIENT
  Sex: Female
  Weight: 90.8 kg

DRUGS (22)
  1. NIASPAN [Suspect]
     Indication: BLOOD CHOLESTEROL INCREASED
     Route: 048
     Dates: start: 20040101
  2. NIASPAN [Suspect]
     Indication: LOW DENSITY LIPOPROTEIN DECREASED
     Route: 048
     Dates: start: 20000101, end: 20040101
  3. GLUCOSAMINE [Concomitant]
     Indication: DRUG USE FOR UNKNOWN INDICATION
  4. VITAMIN E [Concomitant]
     Indication: DRUG USE FOR UNKNOWN INDICATION
  5. VITAMIN WITH LUTINE [Concomitant]
     Indication: FAMILIAL RISK FACTOR
  6. VITAMIN WITH LUTINE [Concomitant]
     Indication: VITAMIN SUPPLEMENTATION
  7. B COMPLEX ELX [Concomitant]
     Indication: BLOOD TRIGLYCERIDES ABNORMAL
     Route: 048
  8. B COMPLEX ELX [Concomitant]
     Indication: BLOOD CHOLESTEROL ABNORMAL
  9. ASPIRIN [Concomitant]
     Indication: PROPHYLAXIS
  10. ASPIRIN [Concomitant]
     Indication: FLUSHING
  11. BENADRYL [Concomitant]
     Indication: PROPHYLAXIS
  12. GENERIC OF DIPYRIDAMOLE [Concomitant]
     Indication: PROPHYLAXIS
  13. GENERIC OF DIPYRIDAMOLE [Concomitant]
     Indication: THROMBOSIS
  14. SINGULAIR [Concomitant]
     Indication: ASTHMA
  15. ISOSORBIDE DINITRATE [Concomitant]
     Indication: BLOOD PRESSURE MANAGEMENT
  16. RAMIPRIL [Concomitant]
     Indication: BLOOD PRESSURE MANAGEMENT
  17. LASIX [Concomitant]
     Indication: OEDEMA
  18. BISOPROLFUM [Concomitant]
     Indication: BLOOD PRESSURE MANAGEMENT
  19. LIPITOR [Concomitant]
     Indication: BLOOD CHOLESTEROL INCREASED
  20. ACIDOPHILUS [Concomitant]
     Indication: PROBIOTIC THERAPY
  21. PRILOSEC [Concomitant]
     Indication: HYPERCHLORHYDRIA
  22. EFFEXOR [Concomitant]
     Indication: DEPRESSION

REACTIONS (2)
  - CHILLS [None]
  - FLUSHING [None]
